FAERS Safety Report 18301794 (Version 1)
Quarter: 2020Q3

REPORT INFORMATION
  Report Type: Spontaneous
  Country: US (occurrence: US)
  Receive Date: 20200923
  Receipt Date: 20200923
  Transmission Date: 20201103
  Serious: Yes (Disabling, Other)
  Sender: FDA-Public Use
  Company Number: US-SA-2020SA256840

PATIENT

DRUGS (4)
  1. RANITIDINE HYDROCHLORIDE. [Suspect]
     Active Substance: RANITIDINE HYDROCHLORIDE
     Indication: DYSPEPSIA
  2. RANITIDINE HYDROCHLORIDE. [Suspect]
     Active Substance: RANITIDINE HYDROCHLORIDE
     Indication: ANTACID THERAPY
     Dosage: 1 DF, QD, 6 DAYS A WEEK
     Dates: start: 201201, end: 2017
  3. ZANTAC 150 (RANITIDINE HYDROCHLORIDE) [Suspect]
     Active Substance: RANITIDINE HYDROCHLORIDE
     Indication: ANTACID THERAPY
     Dosage: 1 DF, QD, 6 DAYS A WEEK
     Dates: start: 201201, end: 2017
  4. ZANTAC 150 (RANITIDINE HYDROCHLORIDE) [Suspect]
     Active Substance: RANITIDINE HYDROCHLORIDE
     Indication: DYSPEPSIA

REACTIONS (17)
  - Anxiety [Not Recovered/Not Resolved]
  - Mental impairment [Unknown]
  - General physical health deterioration [Unknown]
  - Infection susceptibility increased [Unknown]
  - Physical disability [Unknown]
  - Depression [Unknown]
  - Life expectancy shortened [Unknown]
  - Prostate cancer [Not Recovered/Not Resolved]
  - Disturbance in attention [Unknown]
  - Illness [Unknown]
  - Discomfort [Unknown]
  - Malaise [Unknown]
  - Loss of personal independence in daily activities [Unknown]
  - Sleep disorder [Unknown]
  - Pain [Not Recovered/Not Resolved]
  - Asthenia [Unknown]
  - Psychiatric symptom [Unknown]

NARRATIVE: CASE EVENT DATE: 20120809
